FAERS Safety Report 11858038 (Version 1)
Quarter: 2015Q4

REPORT INFORMATION
  Report Type: Spontaneous
  Country: US (occurrence: US)
  Receive Date: 20151222
  Receipt Date: 20151222
  Transmission Date: 20160305
  Serious: No
  Sender: FDA-Public Use
  Company Number: US-TEVA-410602USA

PATIENT

DRUGS (6)
  1. CO-OX 10 [Concomitant]
  2. BETAMETHASONE SPRAY [Concomitant]
  3. TRAZODONE [Suspect]
     Active Substance: TRAZODONE HYDROCHLORIDE
  4. VITAMINS [Concomitant]
     Active Substance: VITAMINS
  5. VITAMIN B12 [Concomitant]
     Active Substance: CYANOCOBALAMIN
  6. ARMOUR THYROID [Concomitant]
     Active Substance: THYROID, PORCINE\THYROID, UNSPECIFIED

REACTIONS (4)
  - Dizziness postural [Unknown]
  - Dysphagia [Recovered/Resolved]
  - Incorrect dose administered [Unknown]
  - Foreign body [Unknown]

NARRATIVE: CASE EVENT DATE: 20130601
